FAERS Safety Report 17240785 (Version 2)
Quarter: 2020Q1

REPORT INFORMATION
  Report Type: Spontaneous
  Country: US (occurrence: US)
  Receive Date: 20200107
  Receipt Date: 20200109
  Transmission Date: 20200409
  Serious: No
  Sender: FDA-Public Use
  Company Number: US-BIOGEN-2019BI00819492

PATIENT
  Age: 52 Year
  Sex: Female

DRUGS (1)
  1. PLEGRIDY [Suspect]
     Active Substance: PEGINTERFERON BETA-1A
     Indication: MULTIPLE SCLEROSIS
     Route: 058
     Dates: start: 20160120

REACTIONS (3)
  - Memory impairment [Unknown]
  - Drug dose omission by device [Not Recovered/Not Resolved]
  - Drug delivery system malfunction [Not Recovered/Not Resolved]

NARRATIVE: CASE EVENT DATE: 201912
